FAERS Safety Report 9251739 (Version 1)
Quarter: 2013Q2

REPORT INFORMATION
  Report Type: Report from Study
  Country: BR (occurrence: BR)
  Receive Date: 20130424
  Receipt Date: 20130424
  Transmission Date: 20140414
  Serious: Yes (Other)
  Sender: FDA-Public Use
  Company Number: BR-ABBOTT-09P-020-0598249-00

PATIENT
  Age: 47 Year
  Sex: Female
  Weight: 54 kg

DRUGS (14)
  1. HUMIRA 40 MG/ 0.8 ML PRE-FILLED SYRINGE [Suspect]
     Indication: RHEUMATOID ARTHRITIS
     Route: 058
     Dates: start: 20090817
  2. METHOTREXATE [Concomitant]
     Indication: RHEUMATOID ARTHRITIS
     Route: 048
  3. UNKNOWN CORTICOID [Concomitant]
     Indication: RHEUMATOID ARTHRITIS
     Dosage: 1/2 TABLET, DAILY
     Route: 048
  4. PROPRANOLOL [Concomitant]
     Indication: BLOOD PRESSURE
     Route: 048
  5. CELECOXIB [Concomitant]
     Indication: ANTIINFLAMMATORY THERAPY
     Route: 048
  6. FOLIC ACID [Concomitant]
     Indication: LIVER DISORDER
     Route: 048
  7. PREDNISONE [Concomitant]
     Indication: RHEUMATOID ARTHRITIS
     Dosage: FORM STRENGTH 5 MG
     Route: 048
  8. DOSMIN/HESPERIDINE [Concomitant]
     Indication: VARICOSE VEIN
     Dosage: 450 MG/50MG
     Route: 047
     Dates: start: 20091006
  9. ATENOLOL [Concomitant]
     Indication: BLOOD PRESSURE
     Route: 048
     Dates: start: 2010
  10. LOSARTAN [Concomitant]
     Indication: BLOOD PRESSURE
     Route: 048
     Dates: start: 2010
  11. CALCIUM [Concomitant]
     Indication: OSTEOPENIA
     Route: 048
     Dates: start: 2010
  12. OMEPRAZOLE [Concomitant]
     Indication: GASTRIC DISORDER
     Dates: start: 2009
  13. PREDNISOLONE [Concomitant]
     Indication: STEROID THERAPY
     Route: 048
     Dates: start: 2009
  14. AMLODIPINE [Concomitant]
     Indication: BLOOD PRESSURE
     Route: 048
     Dates: start: 2010

REACTIONS (17)
  - Gingival swelling [Recovering/Resolving]
  - Gingival inflammation [Recovering/Resolving]
  - Injection site pain [Not Recovered/Not Resolved]
  - Headache [Not Recovered/Not Resolved]
  - Dyspnoea [Not Recovered/Not Resolved]
  - Inflammation [Not Recovered/Not Resolved]
  - Dizziness [Not Recovered/Not Resolved]
  - Pain in extremity [Not Recovered/Not Resolved]
  - Mood swings [Not Recovered/Not Resolved]
  - Synovitis [Not Recovered/Not Resolved]
  - Vein disorder [Not Recovered/Not Resolved]
  - Inflammation [Not Recovered/Not Resolved]
  - Inflammation [Not Recovered/Not Resolved]
  - Immunodeficiency [Not Recovered/Not Resolved]
  - Oral disorder [Recovering/Resolving]
  - Glossodynia [Recovering/Resolving]
  - Influenza [Not Recovered/Not Resolved]
